FAERS Safety Report 8129543-4 (Version None)
Quarter: 2012Q1

REPORT INFORMATION
  Report Type: 
  Country: None (occurrence: None)
  Receive Date: 20120210
  Receipt Date: 20120208
  Transmission Date: 20120608
  Serious: Yes (Hospitalization)
  Sender: FDA-Public Use
  Company Number: JP-BAYER-2012-005146

PATIENT
  Age: 86 Year
  Sex: Female

DRUGS (9)
  1. ADALAT CC [Concomitant]
     Route: 048
  2. ASPIRIN [Suspect]
     Indication: CARDIAC FAILURE
     Dosage: 100 MG, QD
     Route: 048
  3. RABEPRAZOLE SODIUM [Concomitant]
     Dosage: 10 MG, UNK
     Route: 048
     Dates: start: 20111228
  4. ENALAPRIL MALEATE [Concomitant]
     Dosage: 5 MG, UNK
     Route: 048
     Dates: start: 20111228
  5. TORSEMIDE [Concomitant]
     Dosage: 4 MG, UNK
     Route: 048
     Dates: start: 20120104
  6. SIGMART [Concomitant]
     Dosage: 15 MG, UNK
     Route: 048
     Dates: start: 20111228
  7. LIPITOR [Concomitant]
     Dosage: 10 MG, UNK
     Route: 048
     Dates: start: 20111228
  8. BISOPROLOL FUMARATE [Concomitant]
     Dosage: 0.625 MG, UNK
     Route: 048
     Dates: start: 20120104
  9. ASPIRIN [Suspect]
     Indication: MYOCARDIAL INFARCTION

REACTIONS (2)
  - SKIN DISORDER [None]
  - RESPIRATORY DISORDER [None]
